FAERS Safety Report 8452705-3 (Version None)
Quarter: 2012Q2

REPORT INFORMATION
  Report Type: 
  Country: None (occurrence: None)
  Receive Date: 20120620
  Receipt Date: 20120618
  Transmission Date: 20120825
  Serious: Yes (Death, Hospitalization, Other)
  Sender: FDA-Public Use
  Company Number: PHHY2012FR052340

PATIENT
  Sex: Female

DRUGS (8)
  1. ACETAMINOPHEN [Concomitant]
     Dosage: 1 G, TID
     Route: 048
     Dates: start: 20120311, end: 20120410
  2. ZOLOFT [Suspect]
     Indication: ANXIETY
     Dosage: 1 DF, DAILY IN MORNING
     Dates: end: 20120511
  3. OXAZEPAM [Concomitant]
     Dosage: 0.5 DF, DAILY
  4. IMOVANE [Suspect]
     Dosage: 1 DF, DAILY BEDTIME
     Dates: end: 20120511
  5. LEVOTHYROXINE SODIUM [Concomitant]
     Dosage: 1 DF, DAILY
     Dates: end: 20120511
  6. EXELON [Suspect]
     Indication: DEMENTIA ALZHEIMER'S TYPE
     Dosage: 9.5 MG, 1PATCH DAILY
     Route: 062
     Dates: start: 20120410, end: 20120511
  7. ROCEPHIN [Suspect]
     Indication: PNEUMONIA
     Route: 058
     Dates: start: 20120427
  8. AMLODIPINE [Concomitant]
     Dosage: 1 DF, DAILY

REACTIONS (7)
  - BUNDLE BRANCH BLOCK [None]
  - ACUTE CORONARY SYNDROME [None]
  - SUPRAVENTRICULAR EXTRASYSTOLES [None]
  - CACHEXIA [None]
  - PNEUMONIA [None]
  - ACUTE RESPIRATORY DISTRESS SYNDROME [None]
  - TROPONIN INCREASED [None]
